FAERS Safety Report 7287827 (Version 7)
Quarter: 2017Q2

REPORT INFORMATION
  Report Type: Report from Study
  Country: FR (occurrence: FR)
  Receive Date: 20100222
  Receipt Date: 20170421
  Transmission Date: 20170830
  Serious: Yes (Hospitalization)
  Sender: FDA-Public Use
  Company Number: FR-AMGEN-KDC392059

PATIENT
  Age: 51 Year
  Sex: Female
  Weight: 49 kg

DRUGS (13)
  1. FLUOROURACIL. [Suspect]
     Active Substance: FLUOROURACIL
     Indication: BREAST CANCER
     Dosage: 775 MG, UNK
     Route: 042
     Dates: start: 20100108
  2. DOCETAXEL. [Suspect]
     Active Substance: DOCETAXEL
     Indication: BREAST CANCER
     Dosage: UNK UNK, UNK
     Route: 065
     Dates: start: 20100108
  3. LEVOTHYROXINE SODIUM. [Concomitant]
     Active Substance: LEVOTHYROXINE SODIUM
     Dosage: 50 MUG, UNK
  4. DOXYCYCLINE. [Concomitant]
     Active Substance: DOXYCYCLINE
     Dosage: 200 MG, UNK
     Dates: start: 20100108
  5. ZOPHREN [Concomitant]
     Active Substance: ONDANSETRON
     Dosage: 8 MG, UNK
     Dates: start: 20100108
  6. PREDNISOLONE SODIUM SULFOBENZOATE [Concomitant]
     Active Substance: PREDNISOLONE SODIUM METAZOATE
     Dosage: UNK UNK, UNK
     Dates: start: 20100108
  7. CETYLPYRIDINIUM CHLORIDE. [Concomitant]
     Active Substance: CETYLPYRIDINIUM CHLORIDE
     Dosage: UNK UNK, UNK
     Dates: start: 20100108
  8. PANITUMUMAB [Suspect]
     Active Substance: PANITUMUMAB
     Indication: BREAST CANCER
     Dosage: 468 MG, UNK
     Route: 042
     Dates: start: 20100108
  9. CYCLOPHOSPHAMIDE. [Suspect]
     Active Substance: CYCLOPHOSPHAMIDE
     Indication: BREAST CANCER
     Dosage: 775 MG, UNK
     Route: 042
     Dates: start: 20100108
  10. EPIRUBICIN [Suspect]
     Active Substance: EPIRUBICIN
     Indication: BREAST CANCER
     Dosage: 155 MG, UNK
     Route: 042
     Dates: start: 20100108
  11. CHLOROBUTANOL/POLYVINYL ALCOHOL [Concomitant]
  12. DOMPERIDONE [Concomitant]
     Active Substance: DOMPERIDONE
     Dosage: 60 MG, UNK
     Dates: start: 20100108
  13. BICARBONATE [Concomitant]
     Active Substance: BICARBONATE ION
     Dosage: UNK UNK, UNK
     Dates: start: 20100108

REACTIONS (1)
  - Febrile bone marrow aplasia [Recovered/Resolved]

NARRATIVE: CASE EVENT DATE: 20100123
